FAERS Safety Report 9707368 (Version 1)
Quarter: 2013Q4

REPORT INFORMATION
  Report Type: Spontaneous
  Country: US (occurrence: US)
  Receive Date: 20131125
  Receipt Date: 20131125
  Transmission Date: 20140711
  Serious: No
  Sender: FDA-Public Use
  Company Number: US-GLAXOSMITHKLINE-A1036313A

PATIENT
  Age: 55 Year
  Sex: Male

DRUGS (2)
  1. FLOVENT [Suspect]
     Indication: SYSTEMIC MASTOCYTOSIS
     Dosage: 1PUFF TWICE PER DAY
     Route: 055
     Dates: start: 20130801, end: 20130801
  2. NO CONCURRENT MEDICATION [Concomitant]

REACTIONS (4)
  - Headache [Unknown]
  - Chest discomfort [Unknown]
  - Dizziness [Unknown]
  - Feeling abnormal [Unknown]
